FAERS Safety Report 17699838 (Version 1)
Quarter: 2020Q2

REPORT INFORMATION
  Report Type: Report from Study
  Country: US (occurrence: US)
  Receive Date: 20200423
  Receipt Date: 20200423
  Transmission Date: 20200714
  Serious: No
  Sender: FDA-Public Use
  Company Number: US-IGSA-SR10010181

PATIENT
  Age: 58 Year
  Sex: Female
  Weight: 68.9 kg

DRUGS (2)
  1. GAMUNEX-C [Suspect]
     Active Substance: HUMAN IMMUNOGLOBULIN G
     Indication: IMMUNODEFICIENCY COMMON VARIABLE
     Dosage: 45 G, UNK
     Route: 042
     Dates: start: 20200306
  2. GAMUNEX-C [Suspect]
     Active Substance: HUMAN IMMUNOGLOBULIN G
     Dosage: 45 G, UNK
     Route: 042
     Dates: start: 20200214

REACTIONS (3)
  - Diarrhoea [Recovered/Resolved]
  - Dermal cyst [Recovered/Resolved]
  - Rash [Recovered/Resolved]

NARRATIVE: CASE EVENT DATE: 20200306
